FAERS Safety Report 11199330 (Version 2)
Quarter: 2015Q2

REPORT INFORMATION
  Report Type: Spontaneous
  Country: GB (occurrence: None)
  Receive Date: 20150616
  Receipt Date: 20150625
  Transmission Date: 20150821
  Serious: Yes (Other)
  Sender: FDA-Public Use
  Company Number: GB-ALSI-201500131

PATIENT
  Age: 24 Year
  Sex: Male

DRUGS (1)
  1. NITROUS OXIDE. [Suspect]
     Active Substance: NITROUS OXIDE
     Indication: SUBSTANCE ABUSE
     Dosage: RESPIRATORY
     Route: 055

REACTIONS (2)
  - Abnormal behaviour [None]
  - Road traffic accident [None]

NARRATIVE: CASE EVENT DATE: 20141101
